FAERS Safety Report 4744499-X (Version None)
Quarter: 2005Q3

REPORT INFORMATION
  Report Type: 
  Country: None (occurrence: None)
  Receive Date: 20050811
  Receipt Date: 20050728
  Transmission Date: 20060218
  Serious: Yes (Hospitalization)
  Sender: FDA-Public Use
  Company Number: CIO5013029

PATIENT
  Age: 78 Year
  Sex: Male
  Weight: 62.4 kg

DRUGS (2)
  1. PEPTO-BISMOL, ORIGINAL FLAVOR (BISMUTH SUBSALICYLATE 262 MG, CALCIUM C [Suspect]
     Indication: DIARRHOEA
     Dosage: SEE IMAGE
     Route: 048
     Dates: start: 20050712, end: 20050712
  2. PEPTO-BISMOL, FORM/VERSION FLAVOR (BISMUTH SUBSALICYLATE 262 OR 525 MG [Suspect]
     Indication: DIARRHOEA
     Dosage: 30 ML, 1/DAY FOR 3 DAYS, ORAL
     Route: 048

REACTIONS (11)
  - ABNORMAL CLOTTING FACTOR [None]
  - ASTHENIA [None]
  - BLOOD URINE PRESENT [None]
  - FEELING ABNORMAL [None]
  - HAEMORRHAGE [None]
  - HEPATIC FAILURE [None]
  - MALAISE [None]
  - NEOPLASM MALIGNANT [None]
  - RENAL FAILURE [None]
  - RENAL PAIN [None]
  - WEIGHT DECREASED [None]
